FAERS Safety Report 5033426-6 (Version None)
Quarter: 2006Q2

REPORT INFORMATION
  Report Type: 
  Country: None (occurrence: None)
  Receive Date: 20060518
  Receipt Date: 20051102
  Transmission Date: 20061013
  Serious: Yes (Other)
  Sender: FDA-Public Use
  Company Number: 2005150211

PATIENT
  Age: 24 Year
  Sex: Female
  Weight: 134.7183 kg

DRUGS (6)
  1. DEPO-PROVERA [Suspect]
     Indication: CONTRACEPTION
     Dosage: SEE IMAGE
     Dates: start: 20031013, end: 20031013
  2. DEPO-PROVERA [Suspect]
     Indication: MENORRHAGIA
     Dosage: SEE IMAGE
     Dates: start: 20031013, end: 20031013
  3. DEPO-PROVERA [Suspect]
     Indication: CONTRACEPTION
     Dosage: SEE IMAGE
     Dates: start: 20040913, end: 20040913
  4. DEPO-PROVERA [Suspect]
     Indication: MENORRHAGIA
     Dosage: SEE IMAGE
     Dates: start: 20040913, end: 20040913
  5. DEPO-PROVERA [Suspect]
     Indication: CONTRACEPTION
     Dosage: SEE IMAGE
     Dates: start: 20050820, end: 20050820
  6. DEPO-PROVERA [Suspect]
     Indication: MENORRHAGIA
     Dosage: SEE IMAGE
     Dates: start: 20050820, end: 20050820

REACTIONS (4)
  - MENSTRUATION IRREGULAR [None]
  - METRORRHAGIA [None]
  - MOOD SWINGS [None]
  - WEIGHT INCREASED [None]
